FAERS Safety Report 15464862 (Version 1)
Quarter: 2018Q4

REPORT INFORMATION
  Report Type: Spontaneous
  Country: US (occurrence: US)
  Receive Date: 20181004
  Receipt Date: 20181004
  Transmission Date: 20190204
  Serious: No
  Sender: FDA-Public Use
  Company Number: US-BEH-2018095398

PATIENT
  Age: 52 Year
  Sex: Female

DRUGS (2)
  1. PRIVIGEN [Suspect]
     Active Substance: HUMAN IMMUNOGLOBULIN G
     Indication: GUILLAIN-BARRE SYNDROME
     Dosage: 600 ML, BIW (2 DAYS EVERY WEEK)
     Route: 042
     Dates: start: 20151115
  2. PRIVIGEN [Suspect]
     Active Substance: HUMAN IMMUNOGLOBULIN G
     Dosage: 350 ML, OVER 2 DAYS EVERY WEEK
     Route: 042
     Dates: start: 20151115

REACTIONS (1)
  - Headache [Unknown]

NARRATIVE: CASE EVENT DATE: 20181001
